FAERS Safety Report 15144540 (Version 1)
Quarter: 2018Q3

REPORT INFORMATION
  Report Type: Spontaneous
  Country: US (occurrence: US)
  Receive Date: 20180713
  Receipt Date: 20180713
  Transmission Date: 20181010
  Serious: No
  Sender: FDA-Public Use
  Company Number: US-NOVOPROD-608253

PATIENT
  Sex: Male

DRUGS (3)
  1. FIASP [Suspect]
     Active Substance: INSULIN ASPART
     Indication: PRODUCT USED FOR UNKNOWN INDICATION
     Dosage: 6 U, UNK
     Route: 058
     Dates: start: 201806, end: 201806
  2. HUMULIN N [Suspect]
     Active Substance: INSULIN HUMAN
     Indication: PRODUCT USED FOR UNKNOWN INDICATION
     Dosage: 8 U, UNK
     Route: 058
  3. FIASP [Suspect]
     Active Substance: INSULIN ASPART
     Dosage: 8?10 U, UNK
     Route: 058
     Dates: start: 201806

REACTIONS (3)
  - Diabetes mellitus inadequate control [Unknown]
  - Blood glucose decreased [Unknown]
  - Wrong drug administered [Unknown]

NARRATIVE: CASE EVENT DATE: 201806
